FAERS Safety Report 12922673 (Version 1)
Quarter: 2016Q4

REPORT INFORMATION
  Report Type: Spontaneous
  Country: US (occurrence: US)
  Receive Date: 20161108
  Receipt Date: 20161108
  Transmission Date: 20170207
  Serious: Yes (Disabling)
  Sender: FDA-Public Use
  Company Number: None

PATIENT
  Age: 86 Year
  Sex: Male
  Weight: 69.75 kg

DRUGS (10)
  1. IRBESARTAN. [Concomitant]
     Active Substance: IRBESARTAN
  2. PLAVIX [Concomitant]
     Active Substance: CLOPIDOGREL BISULFATE
  3. METFORMIN [Concomitant]
     Active Substance: METFORMIN HYDROCHLORIDE
  4. METOPROLOL SUCC ER [Concomitant]
     Active Substance: METOPROLOL SUCCINATE
  5. ISOSORBIDEMN ER [Concomitant]
  6. AMLODIPINE BESYLATE. [Concomitant]
     Active Substance: AMLODIPINE BESYLATE
  7. RECLAST [Suspect]
     Active Substance: ZOLEDRONIC ACID
     Indication: OSTEOPOROSIS
     Dosage: YEARLY ?INTRAVENOUS ((NOT OTHERWISE SPECIFIED) )
     Route: 042
     Dates: start: 20161103, end: 20161103
  8. SIMVASTATIN. [Concomitant]
     Active Substance: SIMVASTATIN
  9. D3 VITAMIN [Concomitant]
  10. BABY ASPIRIN [Concomitant]
     Active Substance: ASPIRIN

REACTIONS (9)
  - Arthralgia [None]
  - Asthenia [None]
  - Chills [None]
  - Myalgia [None]
  - Pain in extremity [None]
  - Neck pain [None]
  - Mobility decreased [None]
  - Musculoskeletal pain [None]
  - Back pain [None]

NARRATIVE: CASE EVENT DATE: 20161103
